FAERS Safety Report 9136205 (Version 1)
Quarter: 2013Q1

REPORT INFORMATION
  Report Type: Spontaneous
  Country: None (occurrence: US)
  Receive Date: 20130304
  Receipt Date: 20130304
  Transmission Date: 20140127
  Serious: No
  Sender: FDA-Public Use
  Company Number: US-ABBOTT-08P-163-0788775-00

PATIENT
  Sex: Male
  Weight: 78 kg

DRUGS (1)
  1. ANDROGEL 1% [Suspect]
     Indication: BLOOD TESTOSTERONE DECREASED
     Dosage: DAILY DOSE: 5 GRAM(S)
     Route: 062
     Dates: start: 2002

REACTIONS (2)
  - Blood testosterone abnormal [Recovered/Resolved]
  - Product dosage form issue [Unknown]
